FAERS Safety Report 8211557 (Version 2)
Quarter: 2012Q4

REPORT INFORMATION
  Report Type: 
  Country: US (occurrence: US)
  Receive Date: 20111029
  Receipt Date: 20121023
  Transmission Date: 20130627
  Serious: No
  Sender: FDA-Public Use
  Company Number: US-AMGEN-USASP2011009902

PATIENT
  Age: 63 Year
  Sex: Female
  Weight: 79.37 kg

DRUGS (2)
  1. ENBREL [Suspect]
     Indication: RHEUMATOID ARTHRITIS
     Dosage: 50 mg, qwk
     Route: 058
     Dates: start: 20101210
  2. DAYPRO [Concomitant]
     Indication: RHEUMATOID ARTHRITIS
     Dosage: 120 mg, qd
     Route: 048

REACTIONS (3)
  - Headache [Not Recovered/Not Resolved]
  - Nasopharyngitis [Recovered/Resolved]
  - Bronchitis [Recovered/Resolved]
